FAERS Safety Report 10883671 (Version 2)
Quarter: 2015Q1

REPORT INFORMATION
  Report Type: Spontaneous
  Country: JP (occurrence: JP)
  Receive Date: 20150303
  Receipt Date: 20150319
  Transmission Date: 20150721
  Serious: Yes (Hospitalization, Other)
  Sender: FDA-Public Use
  Company Number: JP-UCBSA-2015003952

PATIENT
  Age: 76 Year
  Sex: Male

DRUGS (9)
  1. NEUPRO [Suspect]
     Active Substance: ROTIGOTINE
     Indication: PARKINSON^S DISEASE
     Dosage: 12 MG, ONCE DAILY (QD)
     Route: 062
     Dates: start: 20140712, end: 201408
  2. LEVODOPA BENSERAZIDE [Concomitant]
     Active Substance: BENSERAZIDE\LEVODOPA
     Indication: PRODUCT USED FOR UNKNOWN INDICATION
     Dosage: 300MG DAILY
     Dates: start: 20120316
  3. SELEGILINE HYDROCHLORIDE. [Concomitant]
     Active Substance: SELEGILINE HYDROCHLORIDE
     Indication: PRODUCT USED FOR UNKNOWN INDICATION
     Dosage: 2.5MGDAILY
     Dates: start: 20130729
  4. NEUPRO [Suspect]
     Active Substance: ROTIGOTINE
     Dosage: 12 MG, ONCE DAILY (QD)
     Route: 062
     Dates: start: 20150128, end: 20150128
  5. REBAMIPIDE [Concomitant]
     Active Substance: REBAMIPIDE
     Indication: PRODUCT USED FOR UNKNOWN INDICATION
     Dosage: 300MG DAILY
     Dates: start: 20150126
  6. IFENPRODIL TARTRATE [Concomitant]
     Active Substance: IFENPRODIL TARTRATE
     Indication: PRODUCT USED FOR UNKNOWN INDICATION
     Dosage: 60MG DAILY
     Dates: start: 20120406
  7. PRAMIPEXOLE HYDROCHLORIDE [Concomitant]
     Active Substance: PRAMIPEXOLE DIHYDROCHLORIDE
     Indication: PRODUCT USED FOR UNKNOWN INDICATION
     Dosage: 3MG DAILY
     Dates: start: 20120803, end: 201407
  8. PRAMIPEXOLE HYDROCHLORIDE [Concomitant]
     Active Substance: PRAMIPEXOLE DIHYDROCHLORIDE
     Dosage: 3MG DAILY
     Dates: start: 201408, end: 20150127
  9. PRAMIPEXOLE HYDROCHLORIDE [Concomitant]
     Active Substance: PRAMIPEXOLE DIHYDROCHLORIDE
     Dosage: UNK
     Dates: start: 20150215

REACTIONS (8)
  - Gait disturbance [Recovered/Resolved]
  - Delirium [Recovered/Resolved]
  - Dermatitis contact [Unknown]
  - Drug dose titration not performed [Unknown]
  - Prescribed overdose [None]
  - Dyslalia [Recovered/Resolved]
  - Hallucination, visual [Recovered/Resolved]
  - Product adhesion issue [Unknown]

NARRATIVE: CASE EVENT DATE: 2014
